FAERS Safety Report 10197155 (Version 1)
Quarter: 2014Q2

REPORT INFORMATION
  Report Type: Spontaneous
  Country: US (occurrence: None)
  Receive Date: 20140523
  Receipt Date: 20140523
  Transmission Date: 20141212
  Serious: Yes (Disabling, Other)
  Sender: FDA-Public Use
  Company Number: None

PATIENT
  Age: 56 Year
  Sex: Female
  Weight: 63.5 kg

DRUGS (1)
  1. LEVOFLOXACIN [Suspect]
     Indication: SINUSITIS
     Dosage: TAKEN BY MOUTH
     Dates: start: 20140411, end: 20140417

REACTIONS (9)
  - Gait disturbance [None]
  - Musculoskeletal pain [None]
  - Capillary disorder [None]
  - Arthralgia [None]
  - Joint swelling [None]
  - Joint effusion [None]
  - Pain in extremity [None]
  - Activities of daily living impaired [None]
  - Gait disturbance [None]
